FAERS Safety Report 16508425 (Version 1)
Quarter: 2019Q3

REPORT INFORMATION
  Report Type: Spontaneous
  Country: US (occurrence: US)
  Receive Date: 20190702
  Receipt Date: 20190702
  Transmission Date: 20191004
  Serious: Yes (Death, Other)
  Sender: FDA-Public Use
  Company Number: US-ROCHE-2285397

PATIENT
  Age: 82 Year
  Sex: Female

DRUGS (2)
  1. CAPECITABINE. [Suspect]
     Active Substance: CAPECITABINE
     Indication: BREAST CANCER METASTATIC
     Dosage: ON A 14 OUT OF 28 DAY
     Route: 065
  2. CAPECITABINE. [Suspect]
     Active Substance: CAPECITABINE
     Dosage: ON A 5 DAY OUT OF 28 DAY CYCLE
     Route: 065
     Dates: end: 200603

REACTIONS (2)
  - Renal failure [Unknown]
  - Diarrhoea [Unknown]
